FAERS Safety Report 5490282-X (Version None)
Quarter: 2007Q4

REPORT INFORMATION
  Report Type: 
  Country: None (occurrence: None)
  Receive Date: 20071018
  Receipt Date: 20071009
  Transmission Date: 20080405
  Serious: Yes (Hospitalization, Other)
  Sender: FDA-Public Use
  Company Number: US-GILEAD-2007-0013796

PATIENT
  Age: 43 Year
  Sex: Male

DRUGS (3)
  1. ATRIPLA [Suspect]
     Indication: HIV INFECTION
     Route: 048
     Dates: start: 20070905
  2. BACTRIM [Concomitant]
     Route: 048
     Dates: start: 20070816
  3. FLUCONAZOLE [Concomitant]
     Route: 048
     Dates: start: 20070905

REACTIONS (3)
  - HAEMODIALYSIS [None]
  - RENAL FAILURE [None]
  - SPLENOMEGALY [None]
